FAERS Safety Report 21077733 (Version 1)
Quarter: 2022Q3

REPORT INFORMATION
  Report Type: Spontaneous
  Country: IN (occurrence: IN)
  Receive Date: 20220713
  Receipt Date: 20220713
  Transmission Date: 20221027
  Serious: Yes (Hospitalization)
  Sender: FDA-Public Use
  Company Number: IN-NOVARTISPH-NVSC2022IN158101

PATIENT
  Age: 36 Year
  Sex: Female

DRUGS (4)
  1. CARBAMAZEPINE [Suspect]
     Active Substance: CARBAMAZEPINE
     Indication: Muscle spasms
     Dosage: 200 MG, BID
     Route: 048
  2. METHYLPREDNISOLONE [Concomitant]
     Active Substance: METHYLPREDNISOLONE
     Indication: Neuromyelitis optica spectrum disorder
     Dosage: 1 G
     Route: 042
  3. PREDNISOLONE [Concomitant]
     Active Substance: PREDNISOLONE
     Indication: Neuromyelitis optica spectrum disorder
     Dosage: UNK (TAPERING DOSE AND STOPPED)
     Route: 048
  4. RITUXIMAB [Concomitant]
     Active Substance: RITUXIMAB
     Indication: Immune disorder prophylaxis
     Dosage: 1 G (2 INFUSIONS GIVEN 15 DAYS APART
     Route: 041

REACTIONS (2)
  - Hypersensitivity pneumonitis [Recovered/Resolved]
  - Product use in unapproved indication [Unknown]
